FAERS Safety Report 5623301-8 (Version None)
Quarter: 2008Q1

REPORT INFORMATION
  Report Type: 
  Country: None (occurrence: None)
  Receive Date: 20080206
  Receipt Date: 20080122
  Transmission Date: 20080703
  Serious: Yes (Hospitalization)
  Sender: FDA-Public Use
  Company Number: WAES 0801USA04274

PATIENT
  Age: 61 Year
  Sex: Female
  Weight: 60.782 kg

DRUGS (2)
  1. DECADRON [Suspect]
     Dosage: 75 MG/ML[2]/DAILY/PO
     Route: 048
     Dates: start: 20071022, end: 20071204
  2. TEMODAR [Suspect]
     Indication: GLIOBLASTOMA
     Dosage: 75 MG/M[2]
     Dates: start: 20071022, end: 20071204

REACTIONS (1)
  - DIZZINESS [None]
